FAERS Safety Report 18207925 (Version 2)
Quarter: 2020Q3

REPORT INFORMATION
  Report Type: Spontaneous
  Country: GB (occurrence: GB)
  Receive Date: 20200828
  Receipt Date: 20200909
  Transmission Date: 20201103
  Serious: Yes (Death, Hospitalization)
  Sender: FDA-Public Use
  Company Number: GB-MYLANLABS-2020M1074960

PATIENT
  Age: 67 Year
  Sex: Female

DRUGS (1)
  1. CLOZARIL [Suspect]
     Active Substance: CLOZAPINE
     Indication: SCHIZOPHRENIA
     Dosage: UNK
     Route: 048
     Dates: start: 20200423

REACTIONS (6)
  - Mobility decreased [Unknown]
  - Death [Fatal]
  - Dyspnoea [Unknown]
  - Overweight [Unknown]
  - Cardiac disorder [Unknown]
  - Fall [Unknown]

NARRATIVE: CASE EVENT DATE: 2020
